FAERS Safety Report 8123763-0 (Version None)
Quarter: 2012Q1

REPORT INFORMATION
  Report Type: 
  Country: None (occurrence: None)
  Receive Date: 20120208
  Receipt Date: 20120131
  Transmission Date: 20120608
  Serious: Yes (Other)
  Sender: FDA-Public Use
  Company Number: NO-ASTRAZENECA-2012SE06863

PATIENT
  Age: 40 Year
  Sex: Female

DRUGS (1)
  1. MARCAINE HCL [Suspect]
     Route: 037

REACTIONS (4)
  - NEURALGIA [None]
  - SENSORY LOSS [None]
  - ANAL SPASM [None]
  - HEADACHE [None]
